FAERS Safety Report 7751690-7 (Version None)
Quarter: 2011Q3

REPORT INFORMATION
  Report Type: 
  Country: None (occurrence: None)
  Receive Date: 20110915
  Receipt Date: 20110906
  Transmission Date: 20111222
  Serious: Yes (Hospitalization, Other)
  Sender: FDA-Public Use
  Company Number: GB-AMGEN-GBRSP2011046307

PATIENT
  Age: 12 Year
  Sex: Female

DRUGS (3)
  1. IBUPROFEN [Concomitant]
     Dosage: UNK
  2. ENBREL [Suspect]
     Indication: JUVENILE ARTHRITIS
     Dosage: 15 MG, 2X/WEEK
     Route: 058
     Dates: start: 20110331
  3. METHOTREXATE [Concomitant]
     Dosage: UNK

REACTIONS (2)
  - ORAL PUSTULE [None]
  - OROPHARYNGEAL PAIN [None]
